FAERS Safety Report 7701664-7 (Version None)
Quarter: 2011Q3

REPORT INFORMATION
  Report Type: 
  Country: None (occurrence: None)
  Receive Date: 20110822
  Receipt Date: 20110812
  Transmission Date: 20111222
  Serious: Yes (Other)
  Sender: FDA-Public Use
  Company Number: US-BAYER-201036506NA

PATIENT
  Age: 35 Year
  Sex: Female
  Weight: 88.435 kg

DRUGS (6)
  1. DROSPIRENONE AND ETHINYL ESTRADIOL [Suspect]
     Indication: CONTRACEPTION
     Dosage: UNK
     Route: 048
     Dates: start: 20080906, end: 20080927
  2. IBUPROFEN [Concomitant]
  3. METFORMIN [Concomitant]
     Dosage: 1000 MG, QD
  4. YASMIN [Suspect]
     Indication: CONTRACEPTION
     Dosage: UNK
     Dates: start: 20070901, end: 20071201
  5. ATENOLOL [Concomitant]
     Dosage: 50 MG, QD
  6. LISINOPRIL [Concomitant]
     Dosage: 20 MG, QD

REACTIONS (1)
  - DEEP VEIN THROMBOSIS [None]
